FAERS Safety Report 6298643-6 (Version None)
Quarter: 2009Q3

REPORT INFORMATION
  Report Type: 
  Country: None (occurrence: None)
  Receive Date: 20090804
  Receipt Date: 20090724
  Transmission Date: 20100115
  Serious: Yes (Death, Life-Threatening, Hospitalization, Other)
  Sender: FDA-Public Use
  Company Number: 84433

PATIENT
  Age: 60 Year
  Sex: Female

DRUGS (1)
  1. LEVOTHYROXINE SODIUM [Suspect]
     Indication: HYPOTHYROIDISM
     Dosage: 50UG/DAY; INCREASED TO 100UG/DAY; INCREASED

REACTIONS (7)
  - ASTHENIA [None]
  - DIARRHOEA [None]
  - DRUG LEVEL BELOW THERAPEUTIC [None]
  - HEPATIC FAILURE [None]
  - HEPATIC NECROSIS [None]
  - HEPATIC STEATOSIS [None]
  - RENAL FAILURE [None]
